FAERS Safety Report 11526281 (Version 1)
Quarter: 2015Q3

REPORT INFORMATION
  Report Type: Spontaneous
  Country: US (occurrence: US)
  Receive Date: 20150903
  Receipt Date: 20150903
  Transmission Date: 20151125
  Serious: No
  Sender: FDA-Public Use
  Company Number: US-ELI_LILLY_AND_COMPANY-US201305000609

PATIENT
  Age: 44 Year
  Sex: Male
  Weight: 87.98 kg

DRUGS (1)
  1. CYMBALTA [Suspect]
     Active Substance: DULOXETINE HYDROCHLORIDE
     Indication: BIPOLAR DISORDER
     Dosage: 90 MG (ONE 60MG CAPSULE AND ONE 30MG CAPSULE DAILY), QD
     Route: 065
     Dates: start: 2008, end: 20130427

REACTIONS (7)
  - Intentional product misuse [Unknown]
  - Paraesthesia [Recovered/Resolved]
  - Mental impairment [Recovered/Resolved]
  - Tremor [Recovered/Resolved]
  - Drug withdrawal syndrome [Recovered/Resolved]
  - Off label use [Unknown]
  - Headache [Recovered/Resolved]

NARRATIVE: CASE EVENT DATE: 20130427
